FAERS Safety Report 25327020 (Version 2)
Quarter: 2025Q2

REPORT INFORMATION
  Report Type: Spontaneous
  Country: US (occurrence: US)
  Receive Date: 20250517
  Receipt Date: 20250526
  Transmission Date: 20250716
  Serious: Yes (Other)
  Sender: AUROBINDO
  Company Number: US-MLMSERVICE-20250425-PI491637-00289-1

PATIENT
  Age: 59 Year
  Sex: Male

DRUGS (4)
  1. ROPINIROLE [Suspect]
     Active Substance: ROPINIROLE
     Indication: Parkinson^s disease
     Dosage: 4 MILLIGRAM, ONCE A DAY
     Route: 065
  2. ROPINIROLE [Suspect]
     Active Substance: ROPINIROLE
     Dosage: 2 MILLIGRAM, ONCE A DAY
     Route: 065
  3. HERBALS [Suspect]
     Active Substance: HERBALS
     Indication: Phytotherapy
     Route: 065
  4. CARBIDOPA\LEVODOPA [Concomitant]
     Active Substance: CARBIDOPA\LEVODOPA
     Indication: Parkinson^s disease
     Route: 065

REACTIONS (4)
  - Fall [Unknown]
  - Head injury [Unknown]
  - Loss of consciousness [Unknown]
  - Parkinson^s disease psychosis [Recovering/Resolving]
